FAERS Safety Report 15410688 (Version 1)
Quarter: 2018Q3

REPORT INFORMATION
  Report Type: Spontaneous
  Country: US (occurrence: US)
  Receive Date: 20180919
  Receipt Date: 20180919
  Transmission Date: 20181010
  Serious: Yes (Death, Other)
  Sender: FDA-Public Use
  Company Number: None

PATIENT
  Age: 72 Year
  Sex: Female
  Weight: 72 kg

DRUGS (1)
  1. SENSODYNE COMPLETE PROTECTION EXTRA FRESH [Suspect]
     Active Substance: STANNOUS FLUORIDE
     Indication: DENTAL CLEANING
     Dosage: ?          OTHER STRENGTH:WITH FLUORIDE;QUANTITY:1 3.4 OZ;?
     Route: 061
     Dates: start: 20180901, end: 20180919

REACTIONS (3)
  - Lip swelling [None]
  - Lip erythema [None]
  - Oral discomfort [None]

NARRATIVE: CASE EVENT DATE: 20180919
